FAERS Safety Report 4348784-5 (Version None)
Quarter: 2004Q1

REPORT INFORMATION
  Report Type: 
  Country: None (occurrence: None)
  Receive Date: 20040325
  Receipt Date: 20040216
  Transmission Date: 20041129
  Serious: No
  Sender: FDA-Public Use
  Company Number: USA040259456

PATIENT
  Age: 66 Year
  Sex: Male

DRUGS (3)
  1. FORTEO [Suspect]
     Indication: BONE DISORDER
     Dates: start: 20031001
  2. FORTEO [Suspect]
     Indication: LABORATORY TEST ABNORMAL
     Dates: start: 20031001
  3. OXYCONTIN [Concomitant]

REACTIONS (2)
  - ARTHRALGIA [None]
  - PAIN IN EXTREMITY [None]
